FAERS Safety Report 13167033 (Version 1)
Quarter: 2017Q1

REPORT INFORMATION
  Report Type: Report from Study
  Country: BE (occurrence: BE)
  Receive Date: 20170131
  Receipt Date: 20170131
  Transmission Date: 20170428
  Serious: Yes (Hospitalization, Other)
  Sender: FDA-Public Use
  Company Number: PHHY2016BE157111

PATIENT
  Age: 54 Year
  Sex: Female

DRUGS (3)
  1. AFINITOR [Suspect]
     Active Substance: EVEROLIMUS
     Dosage: 10 MG, QD
     Route: 048
     Dates: start: 20161130, end: 20161228
  2. AFINITOR [Suspect]
     Active Substance: EVEROLIMUS
     Indication: BREAST CANCER
     Dosage: 5 MG, QD
     Route: 048
     Dates: start: 20161105, end: 20161129
  3. AFINITOR [Suspect]
     Active Substance: EVEROLIMUS
     Dosage: 5 MG, QD
     Route: 048

REACTIONS (11)
  - Non-cardiac chest pain [Recovered/Resolved]
  - Non-cardiac chest pain [Unknown]
  - Pleurisy [Recovering/Resolving]
  - Aphthous ulcer [Recovered/Resolved]
  - Rash [Not Recovered/Not Resolved]
  - Liver function test abnormal [Recovering/Resolving]
  - Gallbladder enlargement [Unknown]
  - Transaminases increased [Recovering/Resolving]
  - Dry mouth [Not Recovered/Not Resolved]
  - Fatigue [Not Recovered/Not Resolved]
  - Hyperglycaemia [Recovering/Resolving]

NARRATIVE: CASE EVENT DATE: 20161111
